FAERS Safety Report 10705040 (Version 1)
Quarter: 2015Q1

REPORT INFORMATION
  Report Type: Spontaneous
  Country: US (occurrence: None)
  Receive Date: 20150109
  Receipt Date: 20150109
  Transmission Date: 20150721
  Serious: No
  Sender: FDA-Public Use
  Company Number: None

PATIENT
  Age: 64 Year
  Sex: Female

DRUGS (1)
  1. COPAXONE [Suspect]
     Active Substance: GLATIRAMER ACETATE
     Indication: MULTIPLE SCLEROSIS
     Route: 058

REACTIONS (8)
  - Tremor [None]
  - Feeling hot [None]
  - Flushing [None]
  - Incorrect route of drug administration [None]
  - Injection site haemorrhage [None]
  - Chills [None]
  - Fatigue [None]
  - Wrong technique in drug usage process [None]

NARRATIVE: CASE EVENT DATE: 20150107
